FAERS Safety Report 21909485 (Version 1)
Quarter: 2023Q1

REPORT INFORMATION
  Report Type: Spontaneous
  Country: US (occurrence: US)
  Receive Date: 20230125
  Receipt Date: 20230125
  Transmission Date: 20230417
  Serious: No
  Sender: FDA-Public Use
  Company Number: US-PFIZER INC-202300031402

PATIENT
  Age: 59 Year
  Sex: Male

DRUGS (1)
  1. PAXLOVID [Suspect]
     Active Substance: NIRMATRELVIR\RITONAVIR
     Indication: COVID-19 immunisation
     Dosage: UNK
     Dates: start: 20230102, end: 20230106

REACTIONS (2)
  - COVID-19 [Recovered/Resolved with Sequelae]
  - Disease recurrence [Recovered/Resolved with Sequelae]

NARRATIVE: CASE EVENT DATE: 20230109
